FAERS Safety Report 13708552 (Version 4)
Quarter: 2017Q3

REPORT INFORMATION
  Report Type: Spontaneous
  Country: TW (occurrence: TW)
  Receive Date: 20170630
  Receipt Date: 20170719
  Transmission Date: 20171127
  Serious: Yes (Death, Life-Threatening, Hospitalization)
  Sender: FDA-Public Use
  Company Number: TW-ABBVIE-17P-153-2022945-00

PATIENT
  Age: 63 Year
  Sex: Male

DRUGS (12)
  1. DIOVAN [Concomitant]
     Active Substance: VALSARTAN
     Indication: TYPE 2 DIABETES MELLITUS
  2. CYMBALTA [Concomitant]
     Active Substance: DULOXETINE HYDROCHLORIDE
     Indication: MAJOR DEPRESSION
     Route: 048
     Dates: start: 201109
  3. ABILIFY [Concomitant]
     Active Substance: ARIPIPRAZOLE
     Indication: MAJOR DEPRESSION
     Route: 048
     Dates: start: 201109
  4. EXVIERA [Suspect]
     Active Substance: DASABUVIR
     Indication: CHRONIC HEPATITIS C
     Route: 048
     Dates: start: 20170612, end: 20170627
  5. TRAJENTA [Concomitant]
     Active Substance: LINAGLIPTIN
     Indication: TYPE 2 DIABETES MELLITUS
     Route: 048
     Dates: start: 200607
  6. HUMALOG [Concomitant]
     Active Substance: INSULIN LISPRO
     Indication: DIABETES MELLITUS
     Dates: start: 200607
  7. XANAX [Concomitant]
     Active Substance: ALPRAZOLAM
     Indication: PRODUCT USED FOR UNKNOWN INDICATION
  8. METHYLCOBAL [Concomitant]
     Active Substance: METHYLCOBALAMIN
     Indication: MAJOR DEPRESSION
     Route: 048
     Dates: start: 201109
  9. DIOVAN [Concomitant]
     Active Substance: VALSARTAN
     Indication: HYPERTENSION
     Route: 048
     Dates: start: 200607
  10. VIEKIRAX [Suspect]
     Active Substance: OMBITASVIR\PARITAPREVIR\RITONAVIR
     Indication: CHRONIC HEPATITIS C
     Route: 048
     Dates: start: 20170612, end: 20170627
  11. RIVOTRIL [Concomitant]
     Active Substance: CLONAZEPAM
     Indication: MAJOR DEPRESSION
     Route: 048
     Dates: start: 201109
  12. RIVOTRIL [Concomitant]
     Active Substance: CLONAZEPAM
     Indication: MENTAL DISORDER

REACTIONS (18)
  - Jaundice [Unknown]
  - Hepatorenal syndrome [Unknown]
  - Sepsis syndrome [Fatal]
  - Lower respiratory tract infection [Fatal]
  - Acute respiratory failure [Fatal]
  - Acute hepatic failure [Unknown]
  - Hyperbilirubinaemia [Unknown]
  - White blood cell count increased [Unknown]
  - Coagulopathy [Unknown]
  - Thrombocytopenia [Unknown]
  - Blood bilirubin increased [Unknown]
  - Bilirubin conjugated increased [Unknown]
  - Hepatic encephalopathy [Unknown]
  - Pneumonia [Fatal]
  - Hepatorenal syndrome [Not Recovered/Not Resolved]
  - Oedema peripheral [Unknown]
  - Coma hepatic [Unknown]
  - Hypoxia [Fatal]

NARRATIVE: CASE EVENT DATE: 20170619
